FAERS Safety Report 4575309-1 (Version None)
Quarter: 2005Q1

REPORT INFORMATION
  Report Type: 
  Country: None (occurrence: None)
  Receive Date: 20050209
  Receipt Date: 20050128
  Transmission Date: 20050727
  Serious: Yes (Death)
  Sender: FDA-Public Use
  Company Number: CZ-JNJFOC-20050200472

PATIENT
  Sex: Male

DRUGS (6)
  1. REMICADE [Suspect]
     Route: 042
  2. REMICADE [Suspect]
     Indication: RHEUMATOID ARTHRITIS
     Route: 042
  3. PREDNISON [Concomitant]
  4. METHOTREXATE [Concomitant]
  5. XATRAL [Concomitant]
  6. MONOFLAM [Concomitant]

REACTIONS (5)
  - EMBOLISM [None]
  - NECROSIS [None]
  - PNEUMONIA [None]
  - SUDDEN DEATH [None]
  - TUBERCULOSIS [None]
